FAERS Safety Report 9487177 (Version 6)
Quarter: 2016Q1

REPORT INFORMATION
  Report Type: Spontaneous
  Country: JP (occurrence: JP)
  Receive Date: 20130829
  Receipt Date: 20160122
  Transmission Date: 20160526
  Serious: Yes (Other)
  Sender: FDA-Public Use
  Company Number: JP-BRISTOL-MYERS SQUIBB COMPANY-19140409

PATIENT
  Age: 26 Year
  Sex: Female
  Weight: 46.7 kg

DRUGS (1)
  1. ABILIFY [Suspect]
     Active Substance: ARIPIPRAZOLE
     Indication: PSYCHOMOTOR HYPERACTIVITY
     Dosage: 12 MG, QD
     Route: 048
     Dates: start: 20120804, end: 20120805

REACTIONS (4)
  - Uterine dilation and evacuation [Unknown]
  - Off label use [Unknown]
  - Foetal death [Unknown]
  - Maternal exposure during pregnancy [Recovered/Resolved]

NARRATIVE: CASE EVENT DATE: 201208
